FAERS Safety Report 18534301 (Version 1)
Quarter: 2020Q4

REPORT INFORMATION
  Report Type: Spontaneous
  Country: US (occurrence: US)
  Receive Date: 20201123
  Receipt Date: 20201123
  Transmission Date: 20210114
  Serious: No
  Sender: FDA-Public Use
  Company Number: None

PATIENT
  Age: 82 Year
  Sex: Female
  Weight: 59.85 kg

DRUGS (1)
  1. JAKAFI [Suspect]
     Active Substance: RUXOLITINIB
     Route: 048

REACTIONS (7)
  - Palpitations [None]
  - Feeling cold [None]
  - Blood pressure increased [None]
  - Pruritus [None]
  - Headache [None]
  - Skin burning sensation [None]
  - Feeling jittery [None]
